FAERS Safety Report 22269532 (Version 1)
Quarter: 2023Q2

REPORT INFORMATION
  Report Type: Spontaneous
  Country: US (occurrence: US)
  Receive Date: 20230501
  Receipt Date: 20230501
  Transmission Date: 20230722
  Serious: No
  Sender: FDA-Public Use
  Company Number: US-SA-SAC20230425000448

PATIENT
  Age: 50 Year
  Sex: Male
  Weight: 104.3 kg

DRUGS (1)
  1. DUPIXENT [Suspect]
     Active Substance: DUPILUMAB
     Indication: Chronic rhinosinusitis with nasal polyps
     Dosage: 300 MG EVERY 2 WEEKS
     Route: 058
     Dates: start: 20230103

REACTIONS (7)
  - Acne [Recovering/Resolving]
  - Pain in extremity [Unknown]
  - Increased appetite [Unknown]
  - Sinusitis [Recovered/Resolved]
  - Rash erythematous [Unknown]
  - Arthralgia [Unknown]
  - Therapeutic response decreased [Unknown]

NARRATIVE: CASE EVENT DATE: 20230101
